FAERS Safety Report 8830096 (Version 1)
Quarter: 2012Q4

REPORT INFORMATION
  Report Type: 
  Country: DE (occurrence: DE)
  Receive Date: 20121008
  Receipt Date: 20121008
  Transmission Date: 20130627
  Serious: Yes (Hospitalization)
  Sender: FDA-Public Use
  Company Number: DE-ASTRAZENECA-2012SE64707

PATIENT
  Sex: Male

DRUGS (1)
  1. ATACAND [Suspect]
     Route: 048
     Dates: start: 2012

REACTIONS (4)
  - Cerebrovascular accident [Unknown]
  - Speech disorder [Recovered/Resolved]
  - Memory impairment [Not Recovered/Not Resolved]
  - Fatigue [Not Recovered/Not Resolved]
